FAERS Safety Report 7031935-1 (Version None)
Quarter: 2010Q4

REPORT INFORMATION
  Report Type: 
  Country: None (occurrence: None)
  Receive Date: 20101007
  Receipt Date: 20100928
  Transmission Date: 20110411
  Serious: Yes (Hospitalization, Other)
  Sender: FDA-Public Use
  Company Number: US-ELI_LILLY_AND_COMPANY-US201008005409

PATIENT
  Sex: Male
  Weight: 112.93 kg

DRUGS (8)
  1. BYETTA [Suspect]
     Indication: TYPE 2 DIABETES MELLITUS
     Dosage: 5 UG, 2/D
     Route: 058
  2. BYETTA [Suspect]
     Dosage: 10 UG, 2/D
     Route: 058
     Dates: start: 20100818
  3. METFORMIN [Concomitant]
     Indication: TYPE 2 DIABETES MELLITUS
  4. JANUVIA [Concomitant]
     Indication: TYPE 2 DIABETES MELLITUS
     Dosage: 25 MG, DAILY (1/D)
     Route: 048
     Dates: start: 20080324
  5. FUROSEMIDE [Concomitant]
  6. LISINOPRIL [Concomitant]
  7. GLIPIZIDE [Concomitant]
     Indication: TYPE 2 DIABETES MELLITUS
     Dosage: 6 MG, 2/D
  8. GLYBURIDE [Concomitant]
     Dosage: 10 MG, 2/D
     Route: 048
     Dates: start: 20070912

REACTIONS (9)
  - BLOOD GLUCOSE DECREASED [None]
  - BLOOD GLUCOSE INCREASED [None]
  - DECREASED APPETITE [None]
  - DEHYDRATION [None]
  - HYPOPHAGIA [None]
  - OFF LABEL USE [None]
  - OVERDOSE [None]
  - RENAL FAILURE CHRONIC [None]
  - VOMITING [None]
